FAERS Safety Report 6183954-5 (Version None)
Quarter: 2009Q2

REPORT INFORMATION
  Report Type: 
  Country: None (occurrence: None)
  Receive Date: 20090508
  Receipt Date: 20090504
  Transmission Date: 20091009
  Serious: No
  Sender: FDA-Public Use
  Company Number: US-B.I. PHARMACEUTICALS,INC./RIDGEFIELD-2009-BP-05610BP

PATIENT
  Sex: Female

DRUGS (11)
  1. SPIRIVA [Suspect]
     Indication: CHRONIC OBSTRUCTIVE PULMONARY DISEASE
     Dosage: 18MCG
     Route: 055
     Dates: start: 20070101
  2. ADVAIR HFA [Concomitant]
     Indication: CHRONIC OBSTRUCTIVE PULMONARY DISEASE
  3. NEXIUM [Concomitant]
     Indication: GASTROOESOPHAGEAL REFLUX DISEASE
  4. BENICAR [Concomitant]
     Indication: HYPERTENSION
  5. SINGULAIR [Concomitant]
     Indication: HYPERSENSITIVITY
  6. SINGULAIR [Concomitant]
     Indication: ASTHMA
  7. ASTELIN [Concomitant]
     Indication: HYPERSENSITIVITY
  8. CELEBREX [Concomitant]
     Indication: BACK PAIN
  9. XOPENEX [Concomitant]
     Indication: ASTHMA
  10. MULTI-VITAMIN [Concomitant]
     Indication: PROPHYLAXIS
  11. ASPIRIN [Concomitant]
     Indication: PROPHYLAXIS

REACTIONS (4)
  - COUGH [None]
  - OROPHARYNGEAL PAIN [None]
  - PRURITUS GENERALISED [None]
  - RASH GENERALISED [None]
